FAERS Safety Report 16926282 (Version 2)
Quarter: 2021Q4

REPORT INFORMATION
  Report Type: Spontaneous
  Country: GB (occurrence: GB)
  Receive Date: 20191016
  Receipt Date: 20211208
  Transmission Date: 20220304
  Serious: Yes (Disabling)
  Sender: FDA-Public Use
  Company Number: None

PATIENT
  Age: 52 Year
  Sex: Female
  Weight: 55 kg

DRUGS (3)
  1. ESTRADIOL\NORETHINDRONE ACETATE [Concomitant]
     Active Substance: ESTRADIOL\NORETHINDRONE ACETATE
     Indication: Product used for unknown indication
     Dosage: UNK
     Route: 062
     Dates: end: 201907
  2. VAGIFEM [Suspect]
     Active Substance: ESTRADIOL
     Indication: Atrophic vulvovaginitis
     Dosage: ONE FOR 2 WEEKS THEN TWICE A WEEK.
     Route: 067
     Dates: start: 20190812
  3. VAGIFEM [Suspect]
     Active Substance: ESTRADIOL
     Dosage: ONE FOR 2 WEEKS THEN TWICE A WEEK.
     Route: 067
     Dates: end: 20190812

REACTIONS (4)
  - Illness [Unknown]
  - Migraine [Recovering/Resolving]
  - Nausea [Unknown]
  - Headache [Unknown]

NARRATIVE: CASE EVENT DATE: 20190812
